FAERS Safety Report 20514687 (Version 1)
Quarter: 2022Q1

REPORT INFORMATION
  Report Type: Spontaneous
  Country: MY (occurrence: MY)
  Receive Date: 20220224
  Receipt Date: 20220224
  Transmission Date: 20220423
  Serious: Yes (Other)
  Sender: FDA-Public Use
  Company Number: MY-ABBVIE-22K-101-4287294-00

PATIENT
  Age: 56 Year
  Sex: Female

DRUGS (2)
  1. EPILIM [Suspect]
     Active Substance: VALPROATE SODIUM
     Indication: Seizure
     Dosage: 400MG PER VIAL
     Route: 042
  2. EPILIM [Suspect]
     Active Substance: VALPROATE SODIUM
     Indication: Seizure
     Route: 048

REACTIONS (1)
  - Rash maculo-papular [Recovering/Resolving]
